FAERS Safety Report 9340053 (Version 2)
Quarter: 2013Q2

REPORT INFORMATION
  Report Type: Other
  Country: SK (occurrence: SK)
  Receive Date: 20130610
  Receipt Date: 20130619
  Transmission Date: 20140414
  Serious: Yes (Hospitalization)
  Sender: FDA-Public Use
  Company Number: SK-WATSON-2013-10306

PATIENT
  Age: 67 Year
  Sex: Male

DRUGS (1)
  1. FENTANYL (UNKNOWN) [Suspect]
     Indication: LUNG NEOPLASM MALIGNANT
     Dosage: 150 MCG, UNKNOWN
     Route: 065
     Dates: end: 20130422

REACTIONS (2)
  - Face oedema [Recovered/Resolved]
  - Oedema peripheral [Recovered/Resolved]
